FAERS Safety Report 16482365 (Version 1)
Quarter: 2019Q2

REPORT INFORMATION
  Report Type: Report from Study
  Country: JP (occurrence: JP)
  Receive Date: 20190627
  Receipt Date: 20190627
  Transmission Date: 20190711
  Serious: Yes (Other)
  Sender: FDA-Public Use
  Company Number: JP-VIIV HEALTHCARE LIMITED-JP2018JPN132462

PATIENT
  Age: 37 Year
  Sex: Male

DRUGS (5)
  1. ALESION OPHTHALMIC SOLUTION 0.05% [Concomitant]
     Dosage: UNK
     Dates: start: 20180328, end: 20180610
  2. XYZAL [Concomitant]
     Active Substance: LEVOCETIRIZINE DIHYDROCHLORIDE
     Dosage: UNK
     Dates: start: 20180312, end: 20180610
  3. DESCOVY [Suspect]
     Active Substance: EMTRICITABINE\TENOFOVIR ALAFENAMIDE FUMARATE
     Indication: HIV INFECTION
     Dosage: 1 DF, 1D
     Route: 048
     Dates: start: 20170329
  4. MONTELUKAST SODIUM. [Concomitant]
     Active Substance: MONTELUKAST SODIUM
     Dosage: UNK
     Dates: start: 20180312, end: 20180610
  5. DOLUTEGRAVIR [Suspect]
     Active Substance: DOLUTEGRAVIR
     Indication: HIV INFECTION
     Dosage: 50 MG, 1D
     Route: 048
     Dates: start: 20170329

REACTIONS (6)
  - Enteritis infectious [Recovering/Resolving]
  - Blood creatinine increased [Recovered/Resolved]
  - Tinea pedis [Recovering/Resolving]
  - Irritable bowel syndrome [Recovering/Resolving]
  - Beta 2 microglobulin urine increased [Recovered/Resolved]
  - Blood triglycerides increased [Recovered/Resolved]

NARRATIVE: CASE EVENT DATE: 20170501
